FAERS Safety Report 4604975-7 (Version None)
Quarter: 2005Q2

REPORT INFORMATION
  Report Type: 
  Country: None (occurrence: None)
  Receive Date: 20050217
  Receipt Date: 20041028
  Transmission Date: 20051028
  Serious: No
  Sender: FDA-Public Use
  Company Number: S04-USA-06882-01

PATIENT
  Age: 70 Year
  Sex: Female

DRUGS (14)
  1. MEMANTINE [Suspect]
     Indication: DEMENTIA ALZHEIMER'S TYPE
     Dosage: 10 MG QD PO
     Route: 048
     Dates: start: 20030101
  2. MEMANTINE [Suspect]
     Indication: DEMENTIA ALZHEIMER'S TYPE
     Dosage: 5 MG QD PO
     Route: 048
     Dates: start: 20030601, end: 20030101
  3. MEMANTINE [Suspect]
     Indication: DEMENTIA ALZHEIMER'S TYPE
     Dosage: 10 MG QD PO
     Route: 048
     Dates: start: 20030101, end: 20030101
  4. MEMANTINE [Suspect]
     Indication: DEMENTIA ALZHEIMER'S TYPE
     Dosage: 15 MG QD PO
     Route: 048
     Dates: start: 20030101, end: 20030101
  5. WELLBUTRIN [Suspect]
     Dosage: 150 MG QD
     Dates: start: 20010101, end: 20030601
  6. WELLBUTRIN [Suspect]
     Dosage: 300 MG QD
     Dates: start: 20030601
  7. ARICEPT [Concomitant]
  8. CLARITIN [Concomitant]
  9. ESTRADIOL [Concomitant]
  10. TYLENOL [Concomitant]
  11. ASPIRIN [Concomitant]
  12. MIRAPEX [Concomitant]
  13. ZINC [Concomitant]
  14. MULTI-VITAMIN [Concomitant]

REACTIONS (1)
  - DRUG INTERACTION [None]
